FAERS Safety Report 9262600 (Version 3)
Quarter: 2013Q2

REPORT INFORMATION
  Report Type: Spontaneous
  Country: US (occurrence: US)
  Receive Date: 20130430
  Receipt Date: 20130528
  Transmission Date: 20140414
  Serious: Yes (Other)
  Sender: FDA-Public Use
  Company Number: US-BANPHARM-20131200

PATIENT
  Age: 36 Year
  Sex: Female
  Weight: 58.97 kg

DRUGS (3)
  1. ALEVE LIQUID GELS 220 MG [Suspect]
     Indication: DYSMENORRHOEA
     Dosage: 2-4 CAPSULES EACH MONTH,
     Route: 048
     Dates: start: 2008
  2. FLINTSTONES GUMMIES [Suspect]
     Dosage: 2 DF, QD,
     Route: 048
     Dates: start: 201201, end: 201212
  3. MIDOL EXTENDED RELIEF CAPLET [Suspect]
     Dosage: 2 DF, Q1MON,

REACTIONS (9)
  - Coordination abnormal [Recovered/Resolved]
  - Mental impairment [Recovered/Resolved]
  - Hand-eye coordination impaired [Recovered/Resolved]
  - Grip strength decreased [Recovered/Resolved]
  - Motor dysfunction [Recovered/Resolved]
  - Asthenia [Not Recovered/Not Resolved]
  - Hypoaesthesia [Recovered/Resolved]
  - Pain in extremity [Unknown]
  - Dizziness [Unknown]
